FAERS Safety Report 5815001-6 (Version None)
Quarter: 2008Q3

REPORT INFORMATION
  Report Type: 
  Country: None (occurrence: None)
  Receive Date: 20080718
  Receipt Date: 20080708
  Transmission Date: 20090109
  Serious: Yes (Hospitalization)
  Sender: FDA-Public Use
  Company Number: A0737295A

PATIENT
  Age: 67 Year
  Sex: Male
  Weight: 173 kg

DRUGS (1)
  1. DUTASTERIDE [Suspect]
     Indication: PROSTATE CANCER
     Dosage: .5MG PER DAY
     Route: 048
     Dates: start: 20070131

REACTIONS (1)
  - NEPHROLITHIASIS [None]
